FAERS Safety Report 5833729-9 (Version None)
Quarter: 2008Q3

REPORT INFORMATION
  Report Type: 
  Country: None (occurrence: None)
  Receive Date: 20080804
  Receipt Date: 20080804
  Transmission Date: 20090109
  Serious: Yes (Hospitalization)
  Sender: FDA-Public Use
  Company Number: None

PATIENT
  Age: 85 Year
  Sex: Male
  Weight: 124.59 kg

DRUGS (1)
  1. TERAZOSIN HCL [Suspect]
     Dosage: 8 MG EVERY DAY PO
     Route: 048
     Dates: start: 20080627, end: 20080706

REACTIONS (1)
  - ORTHOSTATIC INTOLERANCE [None]
